FAERS Safety Report 9792033 (Version 1)
Quarter: 2013Q4

REPORT INFORMATION
  Report Type: Spontaneous
  Country: US (occurrence: None)
  Receive Date: 20131230
  Receipt Date: 20131230
  Transmission Date: 20140711
  Serious: Yes (Hospitalization)
  Sender: FDA-Public Use
  Company Number: US-ALKEM-000445

PATIENT
  Age: 56 Year
  Sex: Male

DRUGS (2)
  1. METFORMIN [Suspect]
     Indication: TYPE 2 DIABETES MELLITUS
  2. LISINOPRIL (LISINOPRIL) [Concomitant]

REACTIONS (8)
  - Lactic acidosis [None]
  - Respiratory failure [None]
  - Renal failure acute [None]
  - Jaundice [None]
  - Ascites [None]
  - Oedema [None]
  - Haemodialysis [None]
  - Blood pressure decreased [None]
